FAERS Safety Report 16777181 (Version 1)
Quarter: 2019Q3

REPORT INFORMATION
  Report Type: Spontaneous
  Country: US (occurrence: US)
  Receive Date: 20190716
  Receipt Date: 20190716
  Transmission Date: 20191005
  Serious: No
  Sender: FDA-Public Use
  Company Number: None

PATIENT
  Age: 84 Year
  Sex: Female
  Weight: 77.56 kg

DRUGS (1)
  1. IBANDRONATE SYRINGE, 3 MG/3 ML SRINGE, 3MG/3 M [Suspect]
     Active Substance: IBANDRONATE SODIUM
     Indication: OSTEOPOROSIS
     Dosage: ?          OTHER FREQUENCY:EVRY 3 MOS ;?
     Route: 042
     Dates: start: 201905

REACTIONS (1)
  - Kidney infection [None]
